FAERS Safety Report 4845346-8 (Version None)
Quarter: 2005Q4

REPORT INFORMATION
  Report Type: 
  Country: None (occurrence: None)
  Receive Date: 20051205
  Receipt Date: 20051129
  Transmission Date: 20060501
  Serious: Yes (Hospitalization)
  Sender: FDA-Public Use
  Company Number: TH-GLAXOSMITHKLINE-B0402475A

PATIENT
  Age: 50 Year

DRUGS (2)
  1. AUGMENTIN [Suspect]
     Indication: UPPER RESPIRATORY TRACT INFECTION
     Dosage: 2TAB PER DAY
     Dates: start: 20051123, end: 20051124
  2. ELTROXIN [Concomitant]
     Indication: HYPOTHYROIDISM
     Dosage: 100MCG PER DAY
     Dates: start: 19950101

REACTIONS (3)
  - EYE HAEMORRHAGE [None]
  - JAUNDICE [None]
  - TRANSAMINASES INCREASED [None]
